FAERS Safety Report 4450230-8 (Version None)
Quarter: 2004Q3

REPORT INFORMATION
  Report Type: 
  Country: None (occurrence: None)
  Receive Date: 20040914
  Receipt Date: 20040903
  Transmission Date: 20050211
  Serious: Yes (Life-Threatening)
  Sender: FDA-Public Use
  Company Number: 2004231084JP

PATIENT
  Age: 75 Year
  Sex: Female
  Weight: 40 kg

DRUGS (11)
  1. CABERGOLINE [Suspect]
     Indication: PARKINSON'S DISEASE
     Dosage: 2.5 MG/DAY, ORAL
     Route: 048
     Dates: start: 20031226, end: 20040822
  2. TRIHEXYPHENIDYL HCL [Concomitant]
  3. SENNOSIDE A+B (SENNOSIDE A+B) [Concomitant]
  4. AMOXAPINE [Concomitant]
  5. CONSTAN [Concomitant]
  6. MAGNESIUM OXIDE [Concomitant]
  7. SYMMETREL [Concomitant]
  8. TANDOSPIRONE CITRATE [Concomitant]
  9. RESLIN [Concomitant]
  10. AMOBAN [Concomitant]
  11. RISPERDAL [Concomitant]

REACTIONS (8)
  - ARRHYTHMIA [None]
  - CANDIDIASIS [None]
  - EXTRASYSTOLES [None]
  - INTERSTITIAL LUNG DISEASE [None]
  - PNEUMONIA BACTERIAL [None]
  - PNEUMONIA FUNGAL [None]
  - PSEUDOMONAS INFECTION [None]
  - RESPIRATORY FAILURE [None]
